FAERS Safety Report 10674249 (Version 2)
Quarter: 2015Q1

REPORT INFORMATION
  Report Type: Spontaneous
  Country: US (occurrence: US)
  Receive Date: 20141224
  Receipt Date: 20150318
  Transmission Date: 20150720
  Serious: Yes (Death, Hospitalization, Other)
  Sender: FDA-Public Use
  Company Number: US-SA-2014SA174743

PATIENT
  Age: 49 Year
  Sex: Female

DRUGS (15)
  1. FOLINIC ACID [Suspect]
     Active Substance: LEUCOVORIN
     Indication: RECTAL CANCER
     Route: 065
  2. FOLINIC ACID [Suspect]
     Active Substance: LEUCOVORIN
     Indication: RECTAL CANCER
     Route: 065
     Dates: start: 20140709
  3. ELOXATIN [Suspect]
     Active Substance: OXALIPLATIN
     Indication: RECTAL CANCER
     Route: 065
     Dates: start: 20140625
  4. LEUCOVORIN [Suspect]
     Active Substance: LEUCOVORIN
     Indication: RECTAL CANCER
     Route: 065
     Dates: start: 20140709
  5. LEUCOVORIN [Suspect]
     Active Substance: LEUCOVORIN
     Indication: RECTAL CANCER
     Route: 065
     Dates: start: 20140729
  6. FOLINIC ACID [Suspect]
     Active Substance: LEUCOVORIN
     Indication: RECTAL CANCER
     Route: 065
     Dates: start: 20140625
  7. NEUPOGEN [Concomitant]
     Active Substance: FILGRASTIM
     Dates: start: 20140723, end: 20140723
  8. FOLINIC ACID [Suspect]
     Active Substance: LEUCOVORIN
     Indication: RECTAL CANCER
     Route: 065
     Dates: start: 20140729
  9. LEUCOVORIN [Suspect]
     Active Substance: LEUCOVORIN
     Indication: RECTAL CANCER
     Route: 065
  10. ELOXATIN [Suspect]
     Active Substance: OXALIPLATIN
     Indication: RECTAL CANCER
     Route: 065
     Dates: start: 20140709
  11. ELOXATIN [Suspect]
     Active Substance: OXALIPLATIN
     Indication: RECTAL CANCER
     Route: 065
     Dates: start: 20140729
  12. NEUPOGEN [Concomitant]
     Active Substance: FILGRASTIM
     Dates: start: 20140716, end: 20140716
  13. ELOXATIN [Suspect]
     Active Substance: OXALIPLATIN
     Indication: RECTAL CANCER
     Route: 065
  14. LEUCOVORIN [Suspect]
     Active Substance: LEUCOVORIN
     Indication: RECTAL CANCER
     Route: 065
     Dates: start: 20140625
  15. AVASTIN [Suspect]
     Active Substance: BEVACIZUMAB
     Indication: RECTAL CANCER
     Route: 065

REACTIONS (10)
  - Decreased appetite [Unknown]
  - Vomiting [Fatal]
  - Respiratory arrest [Fatal]
  - Intestinal obstruction [Fatal]
  - Unevaluable event [Unknown]
  - Dysphagia [Unknown]
  - Abdominal distension [Unknown]
  - Nausea [Unknown]
  - Ascites [Fatal]
  - Malaise [Unknown]

NARRATIVE: CASE EVENT DATE: 20140820
